FAERS Safety Report 10173392 (Version 1)
Quarter: 2014Q2

REPORT INFORMATION
  Report Type: Report from Study
  Country: US (occurrence: US)
  Receive Date: 20140515
  Receipt Date: 20140515
  Transmission Date: 20141212
  Serious: Yes (Hospitalization)
  Sender: FDA-Public Use
  Company Number: US-TEVA-481505USA

PATIENT
  Age: 65 Year
  Sex: Male
  Weight: 93.4 kg

DRUGS (10)
  1. TREANDA [Suspect]
     Indication: AMYLOIDOSIS
     Dosage: DAYS 1, 2
     Route: 042
     Dates: start: 20140327
  2. DEXAMETHASONE [Suspect]
     Indication: AMYLOIDOSIS
     Route: 048
     Dates: start: 20140327
  3. ACYCLOVIR [Concomitant]
     Route: 048
     Dates: start: 20130709
  4. ATORVASTATIN [Concomitant]
     Dosage: 40 MILLIGRAM DAILY;
     Route: 048
     Dates: start: 20130701
  5. DEXILANT CPDR [Concomitant]
     Dosage: 30 MILLIGRAM DAILY;
     Route: 048
     Dates: start: 201307
  6. GAMUNEX [Concomitant]
     Dates: start: 1999
  7. POTASSIUM CHLORIDE [Concomitant]
     Route: 048
     Dates: start: 20130906
  8. RANITIDINE [Concomitant]
     Dosage: 150 MILLIGRAM DAILY;
     Route: 048
     Dates: start: 20130808
  9. TORASEMIDE [Concomitant]
     Dosage: 20MG/40MG
     Dates: start: 20130726
  10. LEVOTHYROXINE [Concomitant]
     Dosage: 50 MICROGRAM DAILY;
     Route: 048
     Dates: start: 20130701

REACTIONS (4)
  - Ataxia [Unknown]
  - Paraesthesia [Unknown]
  - Pyrexia [Unknown]
  - Hypothermia [Unknown]
